FAERS Safety Report 9139249 (Version 1)
Quarter: 2013Q1

REPORT INFORMATION
  Report Type: Spontaneous
  Country: CN (occurrence: CN)
  Receive Date: 20130305
  Receipt Date: 20130305
  Transmission Date: 20140127
  Serious: Yes (Life-Threatening, Hospitalization)
  Sender: FDA-Public Use
  Company Number: PHHY2013CN007822

PATIENT
  Age: 24 Year
  Sex: Female

DRUGS (3)
  1. CARBAMAZEPINE [Suspect]
     Indication: EPILEPSY
     Dosage: 100 MG, TID
  2. CARBAMAZEPINE [Suspect]
     Dosage: 200 MG, TID
  3. CARBAMAZEPINE [Suspect]
     Dosage: 100 MG, TID

REACTIONS (11)
  - Lupus-like syndrome [Recovered/Resolved]
  - Ascites [Unknown]
  - Contusion [Unknown]
  - Complement factor C3 decreased [Unknown]
  - Complement factor C4 decreased [Unknown]
  - Haemoglobin decreased [Unknown]
  - Thrombocytopenia [Unknown]
  - Platelet count decreased [Unknown]
  - Epilepsy [Unknown]
  - White blood cell count decreased [Unknown]
  - Drug ineffective [Unknown]
